FAERS Safety Report 19480111 (Version 1)
Quarter: 2021Q2

REPORT INFORMATION
  Report Type: Spontaneous
  Country: US (occurrence: US)
  Receive Date: 20210630
  Receipt Date: 20210630
  Transmission Date: 20210717
  Serious: No
  Sender: FDA-Public Use
  Company Number: US-FOUNDATIONCONSUMERHC-2021-US-000803

PATIENT
  Age: 26 Year
  Sex: Female
  Weight: 70.31 kg

DRUGS (2)
  1. PLAN B ONE?STEP [Suspect]
     Active Substance: LEVONORGESTREL
     Indication: POST COITAL CONTRACEPTION
     Dosage: DROPPED PILL IN WATER BOTTLE AND DRANK
     Route: 048
     Dates: start: 20201221, end: 20201221
  2. UNSPECIFIED HORMONAL BALANCED PILLS [Concomitant]
     Dates: start: 202012

REACTIONS (7)
  - Back pain [Not Recovered/Not Resolved]
  - Vaginal discharge [Not Recovered/Not Resolved]
  - Headache [Not Recovered/Not Resolved]
  - Intentional product misuse [Recovered/Resolved]
  - Breast tenderness [Recovered/Resolved]
  - Menstruation delayed [Not Recovered/Not Resolved]
  - Dysmenorrhoea [Not Recovered/Not Resolved]

NARRATIVE: CASE EVENT DATE: 20201221
